FAERS Safety Report 4305843-0 (Version None)
Quarter: 2004Q1

REPORT INFORMATION
  Report Type: 
  Country: None (occurrence: None)
  Receive Date: 20040226
  Receipt Date: 20040223
  Transmission Date: 20041129
  Serious: Yes (Hospitalization)
  Sender: FDA-Public Use
  Company Number: 04-02-0280

PATIENT
  Age: 67 Year
  Sex: Female

DRUGS (1)
  1. QUININE SULPHATE TABLETS [Suspect]
     Indication: MUSCLE CRAMP

REACTIONS (16)
  - ABDOMINAL PAIN [None]
  - ANTI-PLATELET ANTIBODY POSITIVE [None]
  - BLOOD PRESSURE INCREASED [None]
  - CONFUSIONAL STATE [None]
  - DIALYSIS [None]
  - HAEMOLYTIC URAEMIC SYNDROME [None]
  - HEPATITIS ACUTE [None]
  - NAUSEA [None]
  - NERVOUS SYSTEM DISORDER [None]
  - PYREXIA [None]
  - SEPSIS [None]
  - SYNCOPE [None]
  - THROMBOTIC THROMBOCYTOPENIC PURPURA [None]
  - URINE OUTPUT DECREASED [None]
  - VISION BLURRED [None]
  - VOMITING [None]
